FAERS Safety Report 5067644-8 (Version None)
Quarter: 2006Q3

REPORT INFORMATION
  Report Type: 
  Country: None (occurrence: None)
  Receive Date: 20060802
  Receipt Date: 20051229
  Transmission Date: 20061208
  Serious: Yes (Life-Threatening, Hospitalization)
  Sender: FDA-Public Use
  Company Number: HQWYE160903JAN06

PATIENT
  Sex: Female

DRUGS (15)
  1. ENBREL [Suspect]
     Indication: RHEUMATOID ARTHRITIS
     Route: 058
     Dates: start: 20050928, end: 20051224
  2. ENBREL [Suspect]
     Route: 058
     Dates: start: 20060106, end: 20060211
  3. ENBREL [Suspect]
     Route: 058
     Dates: start: 20060224
  4. PREDNISOLONE [Suspect]
     Indication: RHEUMATOID ARTHRITIS
     Route: 048
  5. RIMATIL [Concomitant]
     Indication: RHEUMATOID ARTHRITIS
     Route: 048
  6. SOLETON [Concomitant]
     Indication: RHEUMATOID ARTHRITIS
     Route: 048
  7. MARZULENE S [Concomitant]
     Indication: GASTRITIS
     Route: 048
  8. MEDROL [Concomitant]
     Dosage: UNKNOWN
     Route: 048
  9. METHYLPREDNISOLONE ACETATE [Concomitant]
     Route: 065
  10. VOLTAREN [Concomitant]
     Indication: RHEUMATOID ARTHRITIS
     Dosage: UNKNOWN (SUPPOSITORY)
     Route: 054
  11. MUCODYNE [Concomitant]
     Dosage: UNKNOWN
     Route: 048
  12. NEOISCOTIN [Concomitant]
     Dosage: UNKNOWN
     Route: 048
  13. BROCIN-CODEINE [Concomitant]
     Dosage: UNKNOWN
     Route: 048
  14. AZULFIDINE [Concomitant]
     Indication: RHEUMATOID ARTHRITIS
     Route: 048
     Dates: start: 20050523, end: 20060224
  15. MEDICON [Concomitant]
     Indication: INTERSTITIAL LUNG DISEASE
     Route: 048

REACTIONS (5)
  - ABSCESS [None]
  - CONDITION AGGRAVATED [None]
  - GASTRIC ULCER [None]
  - INFLUENZA [None]
  - INTERSTITIAL LUNG DISEASE [None]
